FAERS Safety Report 8836925 (Version 1)
Quarter: 2012Q4

REPORT INFORMATION
  Report Type: 
  Country: FR (occurrence: FR)
  Receive Date: 20121012
  Receipt Date: 20121012
  Transmission Date: 20130627
  Serious: Yes (Death)
  Sender: FDA-Public Use
  Company Number: PHHY2012FR089822

PATIENT
  Age: 66 Year
  Sex: Male

DRUGS (8)
  1. CICLOSPORIN [Suspect]
     Indication: COLITIS ULCERATIVE
     Dosage: 2 mg/kg, UNK
  2. NEORAL [Suspect]
     Indication: COLITIS ULCERATIVE
     Dosage: 4 mg/kg, BID
     Route: 048
  3. CORTICOSTEROIDS [Concomitant]
     Route: 042
  4. METHYLPREDNISOLONE [Concomitant]
     Dosage: 30 mg, UNK
     Route: 048
  5. METHYLPREDNISOLONE [Concomitant]
     Dosage: 20 mg, UNK
     Route: 048
  6. METHYLPREDNISOLONE [Concomitant]
     Dosage: 10 mg, UNK
     Route: 048
  7. METHYLPREDNISOLONE [Concomitant]
     Dosage: 5 mg, UNK
     Route: 048
  8. AZATHIOPRINE [Concomitant]
     Dosage: 2-2.5 mg/kg, UNK

REACTIONS (2)
  - Myocardial infarction [Fatal]
  - Myocardial ischaemia [Fatal]
